FAERS Safety Report 6085728-2 (Version None)
Quarter: 2009Q1

REPORT INFORMATION
  Report Type: 
  Country: None (occurrence: None)
  Receive Date: 20090220
  Receipt Date: 20090209
  Transmission Date: 20090719
  Serious: Yes (Hospitalization, Other)
  Sender: FDA-Public Use
  Company Number: PHHY2009US04298

PATIENT
  Sex: Male

DRUGS (2)
  1. EXJADE [Suspect]
     Indication: IRON OVERLOAD
     Dosage: 500 MG, TID
     Route: 048
     Dates: start: 20090109, end: 20090127
  2. EXJADE [Suspect]
     Dosage: 500 MG, QHS
     Route: 048
     Dates: start: 20090203

REACTIONS (4)
  - ABASIA [None]
  - HYPERSENSITIVITY [None]
  - PYREXIA [None]
  - RASH [None]
